FAERS Safety Report 21186038 (Version 1)
Quarter: 2022Q3

REPORT INFORMATION
  Report Type: Spontaneous
  Country: US (occurrence: US)
  Receive Date: 20220808
  Receipt Date: 20220808
  Transmission Date: 20221027
  Serious: Yes (Hospitalization, Other)
  Sender: FDA-Public Use
  Company Number: US-SA-SAC20220804000380

PATIENT
  Age: 61 Year
  Sex: Female

DRUGS (8)
  1. AUBAGIO [Suspect]
     Active Substance: TERIFLUNOMIDE
     Indication: Multiple sclerosis
     Dosage: 1 DF, QD
     Route: 048
     Dates: start: 20220711
  2. CRANBERRY [Concomitant]
     Active Substance: CRANBERRY
  3. PREMARIN [Concomitant]
     Active Substance: ESTROGENS, CONJUGATED
  4. CLINDAMYCIN [Concomitant]
     Active Substance: CLINDAMYCIN
  5. NEURONTIN [Concomitant]
     Active Substance: GABAPENTIN
  6. LISINOPRIL [Concomitant]
     Active Substance: LISINOPRIL
  7. OMEPRAZOLE [Concomitant]
     Active Substance: OMEPRAZOLE
  8. VITAMIN B12 [Concomitant]
     Active Substance: CYANOCOBALAMIN

REACTIONS (1)
  - Myocardial infarction [Unknown]
